FAERS Safety Report 6248257-9 (Version None)
Quarter: 2009Q2

REPORT INFORMATION
  Report Type: 
  Country: None (occurrence: None)
  Receive Date: 20090624
  Receipt Date: 20090609
  Transmission Date: 20091009
  Serious: Yes (Hospitalization, Other)
  Sender: FDA-Public Use
  Company Number: ADE# 09-241DPR

PATIENT
  Age: 55 Year
  Sex: Male
  Weight: 72.5755 kg

DRUGS (7)
  1. DIGOXIN [Suspect]
     Indication: CARDIAC FAILURE
     Dosage: ONE TABLET DAILY
     Dates: start: 20080501
  2. DIGOXIN [Suspect]
     Indication: CARDIAC FAILURE
     Dosage: ONE TABLET DAILY
     Dates: start: 20080601
  3. DIGOXIN [Suspect]
     Indication: CARDIAC FAILURE
     Dosage: ONE TABLET DAILY
     Dates: start: 20080701
  4. DIGOXIN [Suspect]
     Indication: CARDIAC FAILURE
     Dosage: ONE TABLET DAILY
     Dates: start: 20090101
  5. GLUCOPHAGE [Concomitant]
  6. LASIX [Concomitant]
  7. OTHER PILLS FOR CHOLESTEROL [Concomitant]

REACTIONS (9)
  - ANOREXIA [None]
  - CEREBROVASCULAR ACCIDENT [None]
  - CONFUSIONAL STATE [None]
  - DIZZINESS [None]
  - HEART RATE INCREASED [None]
  - HYPOTENSION [None]
  - NAUSEA [None]
  - SOMNOLENCE [None]
  - VISION BLURRED [None]
